FAERS Safety Report 24839223 (Version 2)
Quarter: 2025Q1

REPORT INFORMATION
  Report Type: Report from Study
  Country: US (occurrence: US)
  Receive Date: 20250114
  Receipt Date: 20250203
  Transmission Date: 20250409
  Serious: No
  Sender: ACADIA PHARMACEUTICALS
  Company Number: US-ACADIA PHARMACEUTICALS INC.-ACA-2025-PIM-000292

PATIENT
  Age: 74 Year
  Sex: Female

DRUGS (9)
  1. NUPLAZID [Suspect]
     Active Substance: PIMAVANSERIN TARTRATE
     Indication: Parkinson^s disease psychosis
     Dosage: 34 MILLIGRAM, QD
     Route: 048
     Dates: start: 20210119
  2. AMBIEN [Concomitant]
     Active Substance: ZOLPIDEM TARTRATE
  3. EXELON [Concomitant]
     Active Substance: RIVASTIGMINE TARTRATE
  4. SEROQUEL [Concomitant]
     Active Substance: QUETIAPINE FUMARATE
  5. TYLENOL [Concomitant]
     Active Substance: ACETAMINOPHEN
  6. BACLOFEN [Concomitant]
     Active Substance: BACLOFEN
  7. TUMS [Concomitant]
     Active Substance: CALCIUM CARBONATE
  8. VENLAFAXINE [Concomitant]
     Active Substance: VENLAFAXINE HYDROCHLORIDE
  9. SINEMET [Concomitant]
     Active Substance: CARBIDOPA\LEVODOPA

REACTIONS (2)
  - Product supply issue [Recovered/Resolved]
  - Product use issue [Recovered/Resolved]

NARRATIVE: CASE EVENT DATE: 20250109
